FAERS Safety Report 5097080-X (Version None)
Quarter: 2006Q3

REPORT INFORMATION
  Report Type: 
  Country: None (occurrence: None)
  Receive Date: 20060906
  Receipt Date: 20060822
  Transmission Date: 20061208
  Serious: Yes (Hospitalization)
  Sender: FDA-Public Use
  Company Number: US-AMGEN-US190913

PATIENT
  Sex: Male

DRUGS (2)
  1. ENBREL [Suspect]
     Indication: RHEUMATOID ARTHRITIS
     Route: 058
     Dates: start: 20020701
  2. METHOTREXATE [Concomitant]
     Route: 065

REACTIONS (2)
  - STAPHYLOCOCCAL INFECTION [None]
  - VASCULAR BYPASS GRAFT [None]
